FAERS Safety Report 7450964-7 (Version None)
Quarter: 2011Q2

REPORT INFORMATION
  Report Type: 
  Country: None (occurrence: None)
  Receive Date: 20110422
  Receipt Date: 20110412
  Transmission Date: 20111010
  Serious: Yes (Other)
  Sender: FDA-Public Use
  Company Number: DSA_45425_2011

PATIENT
  Sex: Female

DRUGS (2)
  1. RECITAL /00582602/ [Concomitant]
  2. WELLBUTRIN [Suspect]
     Indication: PRODUCT USED FOR UNKNOWN INDICATION
     Dosage: (300 MG QD), (150 MG QD)

REACTIONS (2)
  - CONVULSION [None]
  - TOOTH FRACTURE [None]
